FAERS Safety Report 9803981 (Version 2)
Quarter: 2015Q3

REPORT INFORMATION
  Report Type: Report from Study
  Country: US (occurrence: US)
  Receive Date: 20140108
  Receipt Date: 20150925
  Transmission Date: 20151125
  Serious: Yes (Other)
  Sender: FDA-Public Use
  Company Number: US-ROCHE-1329930

PATIENT
  Sex: Female

DRUGS (9)
  1. XOLAIR [Suspect]
     Active Substance: OMALIZUMAB
     Indication: ASTHMA
     Route: 058
  2. BENADRYL [Concomitant]
     Active Substance: DIPHENHYDRAMINE HYDROCHLORIDE
     Dosage: EVENING
     Route: 065
  3. SINGULAIR [Concomitant]
     Active Substance: MONTELUKAST SODIUM
  4. AUGMENTIN [Concomitant]
     Active Substance: AMOXICILLIN\CLAVULANATE POTASSIUM
  5. CLARITIN [Concomitant]
     Active Substance: LORATADINE
     Dosage: EVERY MORNING
     Route: 065
  6. XOLAIR [Suspect]
     Active Substance: OMALIZUMAB
     Route: 058
  7. ADVAIR HFA [Concomitant]
     Active Substance: FLUTICASONE PROPIONATE\SALMETEROL XINAFOATE
     Route: 065
  8. ZYRTEC [Concomitant]
     Active Substance: CETIRIZINE HYDROCHLORIDE
     Dosage: EACH BEDTIME
     Route: 065
  9. ALBUTEROL. [Concomitant]
     Active Substance: ALBUTEROL
     Dosage: PRN-AS PER NEEDED
     Route: 065

REACTIONS (16)
  - Nasal congestion [Unknown]
  - Dyspnoea paroxysmal nocturnal [Unknown]
  - Headache [Unknown]
  - Eczema [Unknown]
  - Sinusitis [Unknown]
  - Paranasal sinus discomfort [Recovering/Resolving]
  - Sneezing [Recovering/Resolving]
  - Tenderness [Unknown]
  - Malaise [Unknown]
  - Rhinorrhoea [Unknown]
  - Pruritus [Unknown]
  - Eye pruritus [Unknown]
  - Ear pain [Unknown]
  - Erythema [Unknown]
  - Rash [Unknown]
  - Upper-airway cough syndrome [Unknown]
